FAERS Safety Report 7835275-X (Version None)
Quarter: 2011Q4

REPORT INFORMATION
  Report Type: 
  Country: None (occurrence: None)
  Receive Date: 20111024
  Receipt Date: 20111019
  Transmission Date: 20120403
  Serious: Yes (Hospitalization, Other)
  Sender: FDA-Public Use
  Company Number: US-ABBOTT-11P-163-0865451-00

PATIENT
  Sex: Female
  Weight: 81.72 kg

DRUGS (2)
  1. HUMIRA [Suspect]
     Indication: PSORIASIS
     Route: 058
     Dates: start: 20090101, end: 20100701
  2. HUMIRA [Suspect]
     Indication: PSORIATIC ARTHROPATHY

REACTIONS (7)
  - MOBILITY DECREASED [None]
  - STAPHYLOCOCCAL INFECTION [None]
  - PSORIASIS [None]
  - MALAISE [None]
  - BACK PAIN [None]
  - PYREXIA [None]
  - PRURITUS [None]
